FAERS Safety Report 24863982 (Version 1)
Quarter: 2025Q1

REPORT INFORMATION
  Report Type: Spontaneous
  Country: IT (occurrence: IT)
  Receive Date: 20250120
  Receipt Date: 20250120
  Transmission Date: 20250408
  Serious: Yes (Other)
  Sender: TEVA
  Company Number: IT-TAKEDA-2021TEU006407

PATIENT
  Age: 19 Year
  Sex: Female

DRUGS (2)
  1. LANSOPRAZOLE [Suspect]
     Active Substance: LANSOPRAZOLE
     Indication: Abdominal pain upper
     Route: 065
  2. GAVISCON [Suspect]
     Active Substance: ALUMINUM HYDROXIDE\MAGNESIUM CARBONATE
     Indication: Chest pain
     Route: 065

REACTIONS (5)
  - Diarrhoea [Unknown]
  - Dyspepsia [Unknown]
  - Irritable bowel syndrome [Unknown]
  - Mucous stools [Unknown]
  - Haematochezia [Unknown]
